FAERS Safety Report 6104296-X (Version None)
Quarter: 2009Q1

REPORT INFORMATION
  Report Type: 
  Country: None (occurrence: None)
  Receive Date: 20090305
  Receipt Date: 20090223
  Transmission Date: 20090719
  Serious: Yes (Hospitalization, Other)
  Sender: FDA-Public Use
  Company Number: CA-ELI_LILLY_AND_COMPANY-CA200902006753

PATIENT
  Age: 84 Year
  Sex: Female

DRUGS (4)
  1. FORTEO [Suspect]
     Indication: OSTEOPOROSIS
     Dosage: 20 UG, DAILY (1/D)
     Route: 058
     Dates: start: 20080531
  2. DIOVAN [Concomitant]
     Dosage: 160 MG, UNK
  3. LIPITOR [Concomitant]
  4. NEXIUM [Concomitant]
     Dosage: 40 MG, UNK

REACTIONS (2)
  - ANGINA PECTORIS [None]
  - HEART RATE INCREASED [None]
